FAERS Safety Report 6708350-0 (Version None)
Quarter: 2010Q2

REPORT INFORMATION
  Report Type: 
  Country: None (occurrence: None)
  Receive Date: 20100503
  Receipt Date: 20090909
  Transmission Date: 20101027
  Serious: No
  Sender: FDA-Public Use
  Company Number: US-ASTRAZENECA-2009SE12308

PATIENT
  Sex: Female

DRUGS (4)
  1. NEXIUM [Suspect]
  2. PREVACID [Concomitant]
  3. PRILOSEC [Concomitant]
  4. ZANTAC [Concomitant]

REACTIONS (3)
  - DRUG EXPOSURE DURING PREGNANCY [None]
  - DYSPHAGIA [None]
  - NAUSEA [None]
